FAERS Safety Report 12676298 (Version 1)
Quarter: 2016Q3

REPORT INFORMATION
  Report Type: Spontaneous
  Country: US (occurrence: None)
  Receive Date: 20160822
  Receipt Date: 20160822
  Transmission Date: 20161109
  Serious: Yes (Life-Threatening, Hospitalization)
  Sender: FDA-Public Use
  Company Number: None

PATIENT
  Age: 71 Year
  Sex: Male
  Weight: 81.6 kg

DRUGS (1)
  1. NIVOLUMAB [Suspect]
     Active Substance: NIVOLUMAB
     Indication: LUNG NEOPLASM MALIGNANT
     Dosage: 3 MG/M2 Q 2WKS IV
     Route: 042
     Dates: start: 20160428, end: 20160803

REACTIONS (7)
  - Confusional state [None]
  - Muscular weakness [None]
  - Escherichia sepsis [None]
  - Pneumonia [None]
  - Constipation [None]
  - Benign prostatic hyperplasia [None]
  - Disease progression [None]

NARRATIVE: CASE EVENT DATE: 20160814
